FAERS Safety Report 5465834-3 (Version None)
Quarter: 2007Q3

REPORT INFORMATION
  Report Type: 
  Country: None (occurrence: None)
  Receive Date: 20070919
  Receipt Date: 20070919
  Transmission Date: 20080115
  Serious: Yes (Life-Threatening, Disabling, Other)
  Sender: FDA-Public Use
  Company Number: None

PATIENT
  Sex: Female
  Weight: 76.2043 kg

DRUGS (1)
  1. CELLCEPT [Suspect]
     Indication: SYSTEMIC LUPUS ERYTHEMATOSUS
     Dosage: 2 AND 1/2 TEASPOONS BY MOUTH TWICE DAILY
     Route: 048
     Dates: start: 20070808, end: 20070820

REACTIONS (20)
  - ABDOMINAL PAIN [None]
  - CANDIDIASIS [None]
  - CHEST PAIN [None]
  - CONSTIPATION [None]
  - CONTUSION [None]
  - DIZZINESS [None]
  - DRUG DISPENSING ERROR [None]
  - DYSPHONIA [None]
  - DYSPNOEA [None]
  - EMOTIONAL DISORDER [None]
  - HEADACHE [None]
  - INCORRECT DOSE ADMINISTERED [None]
  - INFLUENZA LIKE ILLNESS [None]
  - INSOMNIA [None]
  - LOSS OF CONSCIOUSNESS [None]
  - MEDICATION ERROR [None]
  - NAUSEA [None]
  - OEDEMA PERIPHERAL [None]
  - OVERDOSE [None]
  - PHARYNGOLARYNGEAL PAIN [None]
